FAERS Safety Report 14206274 (Version 1)
Quarter: 2017Q4

REPORT INFORMATION
  Report Type: Spontaneous
  Country: US (occurrence: US)
  Receive Date: 20171120
  Receipt Date: 20171120
  Transmission Date: 20180321
  Serious: No
  Sender: FDA-Public Use
  Company Number: US-LEXICON PHARMACEUTICALS, INC-17-1606-01086

PATIENT
  Age: 57 Year
  Sex: Male

DRUGS (8)
  1. FENOFIBRATE. [Concomitant]
     Active Substance: FENOFIBRATE
  2. TELOTRISTAT ETHYL [Suspect]
     Active Substance: TELOTRISTAT ETHYL
     Indication: CARCINOID TUMOUR OF THE SMALL BOWEL
     Route: 048
     Dates: start: 201710
  3. ALLOPURINOL. [Concomitant]
     Active Substance: ALLOPURINOL
  4. HYDROCODONE [Concomitant]
     Active Substance: HYDROCODONE
  5. GABAPENTIN. [Concomitant]
     Active Substance: GABAPENTIN
  6. ATIVAN [Concomitant]
     Active Substance: LORAZEPAM
  7. CLONIDINE. [Concomitant]
     Active Substance: CLONIDINE
  8. RANITIDINE. [Concomitant]
     Active Substance: RANITIDINE

REACTIONS (1)
  - Off label use [Not Recovered/Not Resolved]

NARRATIVE: CASE EVENT DATE: 201710
